FAERS Safety Report 16877259 (Version 1)
Quarter: 2019Q4

REPORT INFORMATION
  Report Type: Spontaneous
  Country: US (occurrence: US)
  Receive Date: 20191002
  Receipt Date: 20191002
  Transmission Date: 20200122
  Serious: No
  Sender: FDA-Public Use
  Company Number: US-MYLANLABS-2019M1088411

PATIENT
  Age: 60 Year
  Sex: Female

DRUGS (1)
  1. TRAMADOL. [Suspect]
     Active Substance: TRAMADOL
     Indication: ARTHRITIS
     Dosage: AS NEEDED
     Route: 048

REACTIONS (3)
  - Vomiting [Recovered/Resolved]
  - Oedema [Recovered/Resolved]
  - Migraine [Recovered/Resolved]
